FAERS Safety Report 4693008-2 (Version None)
Quarter: 2005Q2

REPORT INFORMATION
  Report Type: 
  Country: None (occurrence: None)
  Receive Date: 20050617
  Receipt Date: 20010927
  Transmission Date: 20051028
  Serious: Yes (Hospitalization, Disabling)
  Sender: FDA-Public Use
  Company Number: US-BRISTOL-MYERS SQUIBB COMPANY-11014289

PATIENT
  Age: 45 Year
  Sex: Male
  Weight: 73 kg

DRUGS (15)
  1. PRAVACHOL [Suspect]
     Dates: start: 19980101, end: 20010901
  2. GLUCOPHAGE [Suspect]
     Indication: DIABETES MELLITUS
     Route: 048
     Dates: end: 20010901
  3. GLUCOPHAGE [Suspect]
     Indication: DIABETES MELLITUS
     Route: 048
     Dates: start: 19980101, end: 20010901
  4. PROCHLORPERAZINE [Suspect]
     Route: 048
  5. ACTOS [Concomitant]
     Indication: DIABETES MELLITUS
     Route: 048
  6. AMITRIPTYLINE [Concomitant]
     Route: 048
  7. CEPHALEXIN [Concomitant]
     Route: 048
  8. ERY-TAB [Concomitant]
     Route: 048
  9. GLUCOTROL [Concomitant]
     Route: 048
  10. HYDROCODONE BITARTRATE [Concomitant]
     Route: 048
  11. METOCLOPRAMIDE [Concomitant]
     Route: 048
  12. PREVACID [Concomitant]
     Indication: CONSTIPATION
     Route: 048
  13. LIPITOR [Concomitant]
     Indication: BLOOD CHOLESTEROL
     Route: 048
  14. VIOXX [Concomitant]
     Route: 048
  15. CELEBREX [Concomitant]

REACTIONS (6)
  - ABDOMINAL PAIN [None]
  - BACK PAIN [None]
  - CONSTIPATION [None]
  - GASTRIC ULCER [None]
  - OEDEMA PERIPHERAL [None]
  - PAIN IN EXTREMITY [None]
